FAERS Safety Report 9338256 (Version 1)
Quarter: 2013Q2

REPORT INFORMATION
  Report Type: Spontaneous
  Country: US (occurrence: None)
  Receive Date: 20130605
  Receipt Date: 20130605
  Transmission Date: 20140414
  Serious: Yes (Other)
  Sender: FDA-Public Use
  Company Number: None

PATIENT
  Age: 31 Year
  Sex: Female
  Weight: 58.97 kg

DRUGS (1)
  1. CYMBALTA [Suspect]
     Indication: FIBROMYALGIA
     Dosage: 1 TAB/DAY
     Dates: start: 20120911

REACTIONS (7)
  - Headache [None]
  - Confusional state [None]
  - Abnormal dreams [None]
  - Dizziness [None]
  - Asthenia [None]
  - Drug dose omission [None]
  - Memory impairment [None]
